FAERS Safety Report 24633653 (Version 1)
Quarter: 2024Q4

REPORT INFORMATION
  Report Type: Spontaneous
  Country: US (occurrence: US)
  Receive Date: 20241118
  Receipt Date: 20241118
  Transmission Date: 20250115
  Serious: No
  Sender: SANOFI AVENTIS
  Company Number: US-SA-2024SA330015

PATIENT
  Sex: Male

DRUGS (9)
  1. TZIELD [Suspect]
     Active Substance: TEPLIZUMAB-MZWV
     Indication: Diabetes prophylaxis
     Dosage: 90 UG, 1X
     Route: 042
     Dates: start: 20241014, end: 20241014
  2. TZIELD [Suspect]
     Active Substance: TEPLIZUMAB-MZWV
     Dosage: 170 UG, 1X
     Route: 042
     Dates: start: 20241015, end: 20241015
  3. TZIELD [Suspect]
     Active Substance: TEPLIZUMAB-MZWV
     Dosage: 350 UG, 1X
     Route: 042
     Dates: start: 20241016, end: 20241016
  4. TZIELD [Suspect]
     Active Substance: TEPLIZUMAB-MZWV
     Dosage: 710 UG, 1X
     Route: 042
     Dates: start: 20241017, end: 20241017
  5. TZIELD [Suspect]
     Active Substance: TEPLIZUMAB-MZWV
     Dosage: 1450 UG, QD
     Route: 042
     Dates: start: 20241018, end: 20241027
  6. MOTRIN [Concomitant]
     Active Substance: IBUPROFEN
     Indication: Premedication
     Dosage: 400 MG, Q6H
     Dates: start: 20241014, end: 20241027
  7. TYLENOL [Concomitant]
     Active Substance: ACETAMINOPHEN
     Indication: Premedication
     Dosage: 500 MG, Q3H
     Dates: start: 20241014, end: 20241027
  8. BENADRYL [DIPHENHYDRAMINE] [Concomitant]
     Indication: Premedication
     Dosage: 50 MG, PRN; EVERY 6-8 HOURS AS NEEDED
     Dates: start: 20241014, end: 20241027
  9. ZOFRAN [Concomitant]
     Active Substance: ONDANSETRON HYDROCHLORIDE
     Indication: Premedication
     Dosage: 8 MG, Q8H AS NEEDED
     Dates: start: 20241014, end: 20241027

REACTIONS (2)
  - Chills [Unknown]
  - Pyrexia [Recovering/Resolving]

NARRATIVE: CASE EVENT DATE: 20241015
